FAERS Safety Report 9699892 (Version 1)
Quarter: 2013Q4

REPORT INFORMATION
  Report Type: Spontaneous
  Country: IT (occurrence: IT)
  Receive Date: 20131121
  Receipt Date: 20131121
  Transmission Date: 20140711
  Serious: Yes (Death)
  Sender: FDA-Public Use
  Company Number: PHHY2013IT130992

PATIENT
  Age: 77 Year
  Sex: Male

DRUGS (1)
  1. DOCETAXEL [Suspect]
     Indication: BLADDER CANCER
     Dosage: 40 MG/M2, CYCLIC
     Route: 042
     Dates: start: 20131016, end: 20131030

REACTIONS (1)
  - Diarrhoea [Fatal]
